FAERS Safety Report 7963532-5 (Version None)
Quarter: 2011Q4

REPORT INFORMATION
  Report Type: 
  Country: None (occurrence: None)
  Receive Date: 20111208
  Receipt Date: 20111115
  Transmission Date: 20120403
  Serious: No
  Sender: FDA-Public Use
  Company Number: US-BAYER-2011-111597

PATIENT
  Age: 81 Year
  Sex: Female
  Weight: 63 kg

DRUGS (7)
  1. ATENOLOL [Concomitant]
  2. ALEVE (CAPLET) [Suspect]
     Indication: ARTHRITIS
     Dosage: UNK
     Route: 048
     Dates: start: 20111115
  3. VITAMIN D [Concomitant]
  4. GABAPENTIN [Concomitant]
  5. VITAMIN B12 NOS [Concomitant]
  6. HIGH BLOOD PRESSURE MEDICATION [Concomitant]
  7. CRANBERRY [Concomitant]

REACTIONS (1)
  - ARTHRITIS [None]
